FAERS Safety Report 9259189 (Version 2)
Quarter: 2013Q4

REPORT INFORMATION
  Report Type: Spontaneous
  Country: AU (occurrence: AU)
  Receive Date: 20130426
  Receipt Date: 20131107
  Transmission Date: 20140711
  Serious: Yes (Other)
  Sender: FDA-Public Use
  Company Number: PHHY2013AU039450

PATIENT
  Age: 24 Year
  Sex: Male

DRUGS (2)
  1. HYDROCHLOROTHIAZIDE [Suspect]
     Indication: CONGENITAL NEPHROGENIC DIABETES INSIPIDUS
     Dosage: UNK
  2. HYDROCHLOROTHIAZIDE [Suspect]
     Dosage: 25 MG, DAILY

REACTIONS (6)
  - Lichenoid keratosis [Recovered/Resolved]
  - Dermatitis bullous [Recovered/Resolved]
  - Pruritus [Recovered/Resolved]
  - Epidermal necrosis [Recovered/Resolved]
  - Lymphocytic infiltration [Recovered/Resolved]
  - Erythema [Recovered/Resolved]
